FAERS Safety Report 4539240-X (Version None)
Quarter: 2004Q4

REPORT INFORMATION
  Report Type: 
  Country: None (occurrence: None)
  Receive Date: 20041228
  Receipt Date: 20041216
  Transmission Date: 20050328
  Serious: Yes (Death)
  Sender: FDA-Public Use
  Company Number: GB-JNJFOC-20041204543

PATIENT
  Age: 44 Year
  Sex: Male

DRUGS (4)
  1. REMICADE [Suspect]
     Indication: CROHN'S DISEASE
     Route: 042
  2. ASACOL [Concomitant]
     Route: 049
  3. AZATHIOPRINE [Concomitant]
     Indication: CROHN'S DISEASE
     Route: 049
  4. PREDNISOLONE [Concomitant]
     Route: 049

REACTIONS (1)
  - DISSEMINATED TUBERCULOSIS [None]
